FAERS Safety Report 18092012 (Version 1)
Quarter: 2020Q3

REPORT INFORMATION
  Report Type: Spontaneous
  Country: US (occurrence: US)
  Receive Date: 20200730
  Receipt Date: 20200730
  Transmission Date: 20201103
  Serious: Yes (Hospitalization)
  Sender: FDA-Public Use
  Company Number: None

PATIENT
  Age: 59 Year
  Sex: Female
  Weight: 93 kg

DRUGS (2)
  1. CARBOPLATIN (CARBOPLATIN 600MG/VIL INJ) [Suspect]
     Active Substance: CARBOPLATIN
     Indication: SMALL CELL LUNG CANCER
     Dosage: ?          OTHER STRENGTH:600 MG/VIL;?
     Route: 042
     Dates: start: 20200609, end: 20200609
  2. ETOPOSIDE (ETOPOSIDE 50MG CAP) [Suspect]
     Active Substance: ETOPOSIDE
     Indication: SMALL CELL LUNG CANCER
     Route: 048
     Dates: start: 20200609, end: 20200611

REACTIONS (4)
  - Pneumonitis [None]
  - Pancytopenia [None]
  - Therapy interrupted [None]
  - Red blood cell count decreased [None]

NARRATIVE: CASE EVENT DATE: 20200620
